FAERS Safety Report 5066648-9 (Version None)
Quarter: 2006Q3

REPORT INFORMATION
  Report Type: 
  Country: None (occurrence: None)
  Receive Date: 20060712
  Receipt Date: 20060531
  Transmission Date: 20061208
  Serious: No
  Sender: FDA-Public Use
  Company Number: A03200603598

PATIENT
  Sex: Male

DRUGS (12)
  1. UROXATRAL [Suspect]
     Dosage: 10 MG OD - ORAL
     Route: 048
  2. MINOXIDIL [Concomitant]
  3. AMLODIPINE BESYLATE [Concomitant]
  4. CLONIDINE [Concomitant]
  5. ATENOLOL [Concomitant]
  6. WARFARIN SODIUM [Concomitant]
  7. FUROSEMIDE [Concomitant]
  8. COLCHICINE [Concomitant]
  9. FERROUS SULFATE TAB [Concomitant]
  10. ASPIRIN [Concomitant]
  11. ALPRAZOLAM [Concomitant]
  12. EPOGEN [Concomitant]

REACTIONS (2)
  - OEDEMA PERIPHERAL [None]
  - WEIGHT INCREASED [None]
